FAERS Safety Report 10239091 (Version 1)
Quarter: 2014Q2

REPORT INFORMATION
  Report Type: Spontaneous
  Country: US (occurrence: US)
  Receive Date: 20140616
  Receipt Date: 20140616
  Transmission Date: 20141212
  Serious: Yes (Hospitalization)
  Sender: FDA-Public Use
  Company Number: US-PFIZER INC-2014162046

PATIENT
  Age: 63 Year
  Sex: Female
  Weight: 150 kg

DRUGS (3)
  1. ARTHROTEC [Suspect]
     Dosage: [MISOPROSTOL 200MCG]/[DICLOFENAC SODIUM 50MG], 1 DF, ONCE DAILY
     Route: 048
     Dates: end: 20140501
  2. DIOVAN [Concomitant]
     Dosage: UNK
  3. NADOLOL [Concomitant]
     Dosage: UNK

REACTIONS (3)
  - Gastric disorder [Unknown]
  - Urine potassium increased [Unknown]
  - Weight decreased [Unknown]
